FAERS Safety Report 7600508-1 (Version None)
Quarter: 2011Q3

REPORT INFORMATION
  Report Type: 
  Country: None (occurrence: None)
  Receive Date: 20110711
  Receipt Date: 20110701
  Transmission Date: 20111222
  Serious: Yes (Hospitalization)
  Sender: FDA-Public Use
  Company Number: US-ASTRAZENECA-2011SE39622

PATIENT
  Sex: Female

DRUGS (2)
  1. AMITRIPTYLINE HCL [Concomitant]
     Indication: DEPRESSION
     Dates: end: 19860101
  2. SEROQUEL [Suspect]
     Route: 048
     Dates: end: 20060329

REACTIONS (3)
  - DYSPNOEA [None]
  - DYSPHAGIA [None]
  - THROAT TIGHTNESS [None]
